FAERS Safety Report 9271083 (Version 3)
Quarter: 2013Q2

REPORT INFORMATION
  Report Type: Spontaneous
  Country: JP (occurrence: JP)
  Receive Date: 20130506
  Receipt Date: 20130612
  Transmission Date: 20140414
  Serious: Yes (Death, Life-Threatening)
  Sender: FDA-Public Use
  Company Number: JP-CELGENEUS-087-21880-13050005

PATIENT
  Age: 55 Year
  Sex: Male

DRUGS (7)
  1. REVLIMID [Suspect]
     Indication: PLASMA CELL MYELOMA
     Dosage: 5 MILLIGRAM
     Route: 048
     Dates: start: 20130426, end: 20130429
  2. LENADEX [Suspect]
     Indication: PLASMA CELL MYELOMA
     Route: 048
     Dates: start: 20130426, end: 20130426
  3. DECADRON [Concomitant]
     Indication: PRODUCT USED FOR UNKNOWN INDICATION
     Route: 065
     Dates: start: 20130408
  4. BAKTAR [Concomitant]
     Indication: INFECTION PROPHYLAXIS
     Route: 048
     Dates: start: 20130426, end: 20130426
  5. LENDORMIN [Concomitant]
     Indication: INSOMNIA
     Dosage: .25 MILLIGRAM
     Route: 048
  6. TAKEPRON [Concomitant]
     Indication: PROPHYLAXIS
     Dosage: 15 MILLIGRAM
     Route: 048
  7. TRAMCET [Concomitant]
     Indication: PAIN
     Dosage: 16 TABLET
     Route: 048

REACTIONS (1)
  - Septic shock [Fatal]
